FAERS Safety Report 7711497-3 (Version None)
Quarter: 2011Q3

REPORT INFORMATION
  Report Type: 
  Country: None (occurrence: None)
  Receive Date: 20110826
  Receipt Date: 20110822
  Transmission Date: 20111222
  Serious: Yes (Other)
  Sender: FDA-Public Use
  Company Number: US-ABBOTT-11P-163-0848197-00

PATIENT
  Sex: Female
  Weight: 72.64 kg

DRUGS (3)
  1. STEROIDS [Concomitant]
     Indication: PSORIATIC ARTHROPATHY
  2. HUMIRA [Suspect]
     Dates: start: 20110401, end: 20110801
  3. HUMIRA [Suspect]
     Indication: PSORIATIC ARTHROPATHY
     Dates: start: 20110101, end: 20110301

REACTIONS (5)
  - DRUG INEFFECTIVE [None]
  - JOINT SWELLING [None]
  - ARTHRALGIA [None]
  - JOINT DESTRUCTION [None]
  - PAIN IN EXTREMITY [None]
